FAERS Safety Report 9866889 (Version 1)
Quarter: 2014Q1

REPORT INFORMATION
  Report Type: Spontaneous
  Country: US (occurrence: None)
  Receive Date: 20140131
  Receipt Date: 20140131
  Transmission Date: 20141002
  Serious: Yes (Hospitalization)
  Sender: FDA-Public Use
  Company Number: 152516

PATIENT
  Age: 36 Year
  Sex: Male

DRUGS (1)
  1. DAUNORUBICIN HCL [Suspect]
     Indication: ACUTE LYMPHOCYTIC LEUKAEMIA
     Dosage: 52MG IV ADMINISTERED ON DAYS 1, 8 , 15, AND 22 UNKNOWN DURATION
     Route: 042

REACTIONS (2)
  - Acute myocardial infarction [None]
  - Coronary artery occlusion [None]
